FAERS Safety Report 9278119 (Version 2)
Quarter: 2013Q2

REPORT INFORMATION
  Report Type: Spontaneous
  Country: FR (occurrence: FR)
  Receive Date: 20130508
  Receipt Date: 20130516
  Transmission Date: 20140414
  Serious: Yes (Hospitalization)
  Sender: FDA-Public Use
  Company Number: FR-PFIZER INC-2013142570

PATIENT
  Age: 88 Year
  Sex: Male
  Weight: 50 kg

DRUGS (7)
  1. ALDACTONE [Suspect]
     Dosage: 50 MG, 1X/DAY
     Route: 048
     Dates: start: 201302
  2. IKOREL [Concomitant]
     Dosage: 10 MG, 1X/DAY
     Route: 048
  3. RAMIPRIL [Concomitant]
     Dosage: 10 MG, 1X/DAY
     Route: 048
     Dates: end: 20130323
  4. PANTOPRAZOLE [Concomitant]
     Dosage: 40 MG, 1X/DAY
     Route: 048
  5. LASILIX [Concomitant]
     Dosage: 40 MG, 2X/DAY
     Route: 048
  6. TEMERIT [Concomitant]
     Dosage: 2.5 MG, 2X/DAY
     Route: 048
  7. PREVISCAN [Concomitant]
     Dosage: 5 MG, ALTERNATE DAY
     Route: 048

REACTIONS (3)
  - Agranulocytosis [Recovered/Resolved]
  - Thrombocytopenia [Recovering/Resolving]
  - Anaemia [Not Recovered/Not Resolved]
